FAERS Safety Report 9997901 (Version 1)
Quarter: 2014Q1

REPORT INFORMATION
  Report Type: Spontaneous
  Country: US (occurrence: None)
  Receive Date: 20140304
  Receipt Date: 20140304
  Transmission Date: 20141002
  Serious: Yes (Other)
  Sender: FDA-Public Use
  Company Number: RB-51565-2013

PATIENT
  Sex: Male

DRUGS (5)
  1. SUBUTEX [Suspect]
     Indication: DRUG DEPENDENCE
     Route: 064
     Dates: start: 2012
  2. BUPRENORPHINE [Suspect]
     Indication: DRUG DEPENDENCE
     Route: 064
     Dates: start: 2012, end: 20130228
  3. NICOTINE [Suspect]
     Indication: PRODUCT USED FOR UNKNOWN INDICATION
     Dosage: (20 CIGARETTES PER DAY TRANSPLACENTAL)
     Route: 064
     Dates: start: 2012, end: 20130228
  4. PRENATAL VITAMINS [Suspect]
     Indication: PREGNANCY
     Route: 064
     Dates: end: 20130228
  5. COLACE [Suspect]
     Indication: CONSTIPATION
     Route: 064

REACTIONS (3)
  - Drug withdrawal syndrome neonatal [None]
  - Exposure during breast feeding [None]
  - Maternal drugs affecting foetus [None]
